FAERS Safety Report 5472178-2 (Version None)
Quarter: 2007Q3

REPORT INFORMATION
  Report Type: 
  Country: None (occurrence: None)
  Receive Date: 20070925
  Receipt Date: 20070918
  Transmission Date: 20080115
  Serious: Yes (Hospitalization)
  Sender: FDA-Public Use
  Company Number: 6298/E2B_00010046

PATIENT
  Age: 54 Year
  Sex: Male

DRUGS (7)
  1. METFORMIN HCL [Suspect]
     Indication: TYPE 2 DIABETES MELLITUS
     Dosage: 2000 MG (1000 MG, 2 IN 1 D) PO
     Route: 048
     Dates: start: 20040601
  2. BLINDED STUDY MEDICATION [Suspect]
     Indication: TYPE 2 DIABETES MELLITUS
     Dates: start: 20051114, end: 20070109
  3. ASPIRIN [Concomitant]
  4. ACCUPRIL [Concomitant]
  5. LESCOL XL [Concomitant]
  6. ACETAMINOPHEN [Concomitant]
  7. CIALIS [Concomitant]

REACTIONS (12)
  - ABDOMINAL PAIN [None]
  - BILE DUCT CANCER [None]
  - BILE DUCT STENOSIS [None]
  - CORONARY ARTERY DISEASE [None]
  - CORONARY ARTERY OCCLUSION [None]
  - GRANULOMA [None]
  - HEPATIC LESION [None]
  - LYMPHOMA [None]
  - NEOPLASM MALIGNANT [None]
  - PANCREATIC MASS [None]
  - PORTAL VEIN STENOSIS [None]
  - SARCOIDOSIS [None]
